FAERS Safety Report 7746690-7 (Version None)
Quarter: 2011Q3

REPORT INFORMATION
  Report Type: 
  Country: None (occurrence: None)
  Receive Date: 20110913
  Receipt Date: 20110901
  Transmission Date: 20111222
  Serious: Yes (Other)
  Sender: FDA-Public Use
  Company Number: BR-UCBSA-040581

PATIENT
  Sex: Male

DRUGS (9)
  1. ATENOLOL [Concomitant]
     Indication: HYPERTENSION
     Route: 048
  2. ZYXEM [Suspect]
     Indication: NASOPHARYNGITIS
     Route: 048
     Dates: start: 20110405, end: 20110425
  3. ROCALTROL [Concomitant]
     Indication: HYPOVITAMINOSIS
     Route: 048
  4. OSCAL [Concomitant]
     Indication: CALCIUM DEFICIENCY
     Route: 048
  5. ZYXEM [Suspect]
     Indication: RHINITIS
     Route: 048
     Dates: start: 20110405, end: 20110425
  6. ZYXEM [Suspect]
     Indication: PRURITUS
     Route: 048
     Dates: start: 20110405, end: 20110425
  7. ALLOPURINOL [Concomitant]
     Indication: GOUT
     Route: 048
  8. MANIVASC [Concomitant]
     Indication: HYPERTENSION
     Route: 048
  9. LEXAPRO [Concomitant]
     Indication: DEPRESSION
     Route: 048

REACTIONS (2)
  - RENAL IMPAIRMENT [None]
  - CREATININE RENAL CLEARANCE DECREASED [None]
